FAERS Safety Report 7786471-1 (Version None)
Quarter: 2011Q3

REPORT INFORMATION
  Report Type: 
  Country: None (occurrence: None)
  Receive Date: 20110927
  Receipt Date: 20110912
  Transmission Date: 20111222
  Serious: Yes (Other)
  Sender: FDA-Public Use
  Company Number: 2011SP042907

PATIENT
  Sex: Female

DRUGS (1)
  1. INTRON A [Suspect]
     Indication: ESSENTIAL THROMBOCYTHAEMIA
     Dosage: TIW

REACTIONS (1)
  - THROMBOCYTOSIS [None]
